FAERS Safety Report 9334449 (Version 1)
Quarter: 2013Q2

REPORT INFORMATION
  Report Type: Spontaneous
  Country: FR (occurrence: FR)
  Receive Date: 20130606
  Receipt Date: 20130606
  Transmission Date: 20140414
  Serious: Yes (Death)
  Sender: FDA-Public Use
  Company Number: FR-PFIZER INC-2013169872

PATIENT
  Age: 58 Year
  Sex: Male

DRUGS (3)
  1. PREGABALIN [Suspect]
     Dosage: UNK
  2. GEMCITABINE HYDROCHLORIDE [Suspect]
     Dosage: UNK
  3. CISPLATIN [Suspect]
     Dosage: UNK

REACTIONS (1)
  - Myocardial infarction [Fatal]
